FAERS Safety Report 21850135 (Version 1)
Quarter: 2023Q1

REPORT INFORMATION
  Report Type: Spontaneous
  Country: US (occurrence: None)
  Receive Date: 20230111
  Receipt Date: 20230111
  Transmission Date: 20230417
  Serious: Yes (Life-Threatening)
  Sender: FDA-Public Use
  Company Number: None

PATIENT
  Age: 47 Year
  Sex: Female
  Weight: 156 kg

DRUGS (4)
  1. LUMASON [Suspect]
     Active Substance: SULFUR HEXAFLUORIDE
     Indication: Cardiac imaging procedure
     Dosage: OTHER FREQUENCY : ONCE;?
     Route: 042
     Dates: start: 20230109, end: 20230109
  2. PIPERACILLIN AND TAZOBACTAM [Concomitant]
     Active Substance: PIPERACILLIN SODIUM\TAZOBACTAM SODIUM
     Dates: start: 20230108, end: 20230110
  3. IOPAMIDOL [Concomitant]
     Active Substance: IOPAMIDOL
     Dates: start: 20230108, end: 20230108
  4. HEPARIN [Concomitant]
     Active Substance: HEPARIN SODIUM
     Dates: start: 20230108, end: 20230110

REACTIONS (6)
  - Flushing [None]
  - Bradycardia [None]
  - Atrioventricular block [None]
  - Hypotension [None]
  - Respiratory arrest [None]
  - Pulse absent [None]

NARRATIVE: CASE EVENT DATE: 20230109
